FAERS Safety Report 6168808-2 (Version None)
Quarter: 2009Q2

REPORT INFORMATION
  Report Type: 
  Country: None (occurrence: None)
  Receive Date: 20090424
  Receipt Date: 20090424
  Transmission Date: 20091009
  Serious: Yes (Hospitalization)
  Sender: FDA-Public Use
  Company Number: None

PATIENT
  Sex: Female
  Weight: 58.97 kg

DRUGS (4)
  1. CARBOPLATIN [Suspect]
     Dosage: 874 MG
     Dates: end: 20090320
  2. TAXOL [Suspect]
     Dosage: 287 MG
     Dates: end: 20090320
  3. COLACE [Concomitant]
  4. VITAMINS [Concomitant]

REACTIONS (7)
  - DIZZINESS [None]
  - FALL [None]
  - FEELING ABNORMAL [None]
  - NAUSEA [None]
  - VERTIGO [None]
  - VESTIBULITIS [None]
  - VIRAL INFECTION [None]
